FAERS Safety Report 20231421 (Version 1)
Quarter: 2021Q4

REPORT INFORMATION
  Report Type: Spontaneous
  Country: UA (occurrence: UA)
  Receive Date: 20211227
  Receipt Date: 20211227
  Transmission Date: 20220303
  Serious: Yes (Other)
  Sender: FDA-Public Use
  Company Number: UA-NOVARTISPH-NVSC2021UA296050

PATIENT
  Age: 80 Year
  Sex: Female

DRUGS (1)
  1. BROLUCIZUMAB [Suspect]
     Active Substance: BROLUCIZUMAB
     Indication: Age-related macular degeneration
     Dosage: 6 MG, 0.05 ML QMO
     Route: 031
     Dates: start: 20211213

REACTIONS (4)
  - Keratic precipitates [Unknown]
  - Iridocyclitis [Not Recovered/Not Resolved]
  - Eye pain [Unknown]
  - Vision blurred [Unknown]

NARRATIVE: CASE EVENT DATE: 20211214
